FAERS Safety Report 18165679 (Version 1)
Quarter: 2020Q3

REPORT INFORMATION
  Report Type: Spontaneous
  Country: US (occurrence: US)
  Receive Date: 20200818
  Receipt Date: 20200818
  Transmission Date: 20201103
  Serious: Yes (Hospitalization)
  Sender: FDA-Public Use
  Company Number: US-PURDUE-USA-2020-0161459

PATIENT
  Sex: Male

DRUGS (34)
  1. DILAUDID [Suspect]
     Active Substance: HYDROMORPHONE HYDROCHLORIDE
     Dosage: 0.2 MG/ML, UNK
     Route: 042
  2. ACETAMINOPHEN. [Concomitant]
     Active Substance: ACETAMINOPHEN
     Indication: HEADACHE
     Dosage: 650 MG,EVERY 4 HOURS
     Route: 048
     Dates: start: 20111109
  3. CEFAZOLIN [Concomitant]
     Active Substance: CEFAZOLIN
     Indication: PRODUCT USED FOR UNKNOWN INDICATION
     Dosage: 1 G, TID
     Route: 065
     Dates: start: 20111109
  4. NALOXONE [Concomitant]
     Active Substance: NALOXONE
     Indication: PRODUCT USED FOR UNKNOWN INDICATION
     Dosage: 0.4 MG/ML, PRN
     Route: 042
     Dates: start: 20111109
  5. PHENERGAN [Concomitant]
     Active Substance: PROMETHAZINE HYDROCHLORIDE
     Indication: VOMITING
  6. DECADRON                           /00016002/ [Concomitant]
     Active Substance: DEXAMETHASONE
     Indication: NAUSEA
     Dosage: 4 MG, UNK
     Route: 065
  7. DILAUDID [Suspect]
     Active Substance: HYDROMORPHONE HYDROCHLORIDE
     Dosage: 1 MG, Q4H
     Route: 058
  8. MS CONTIN [Suspect]
     Active Substance: MORPHINE SULFATE
     Indication: PAIN
     Dosage: 15 MG, BID
     Route: 048
     Dates: start: 20121225
  9. ATORVASTATIN [Concomitant]
     Active Substance: ATORVASTATIN
     Indication: BLOOD CHOLESTEROL DECREASED
     Dosage: 40 MG TABLET DAILY
     Route: 065
  10. BENADRYL [Concomitant]
     Active Substance: DIPHENHYDRAMINE HYDROCHLORIDE
     Indication: PRURITUS
  11. BENADRYL [Concomitant]
     Active Substance: DIPHENHYDRAMINE HYDROCHLORIDE
     Indication: NAUSEA
  12. DILAUDID [Suspect]
     Active Substance: HYDROMORPHONE HYDROCHLORIDE
     Dosage: 0.4 MG/ML, UNK
     Route: 042
  13. SUBLIMAZE [Suspect]
     Active Substance: FENTANYL CITRATE
     Indication: PAIN
     Dosage: 50 MCG, UNK
     Route: 065
  14. PHENERGAN [Concomitant]
     Active Substance: PROMETHAZINE HYDROCHLORIDE
     Indication: NAUSEA
     Dosage: UNK
     Route: 065
  15. DECADRON                           /00016002/ [Concomitant]
     Active Substance: DEXAMETHASONE
     Indication: VOMITING
  16. DEMEROL [Concomitant]
     Active Substance: MEPERIDINE HYDROCHLORIDE
     Indication: CHILLS
     Dosage: 12.5 MG, UNK
     Route: 065
  17. DILAUDID [Suspect]
     Active Substance: HYDROMORPHONE HYDROCHLORIDE
     Dosage: 1 MG, Q2H
     Route: 042
  18. DILAUDID [Suspect]
     Active Substance: HYDROMORPHONE HYDROCHLORIDE
     Dosage: 0.6 MG/ML, UNK
     Route: 042
  19. OXYCODONE HCL TABLETS (91?490) [Suspect]
     Active Substance: OXYCODONE HYDROCHLORIDE
     Indication: NECK SURGERY
     Dosage: 10 MG, Q4H
     Route: 048
     Dates: start: 20111109
  20. NORCO [Suspect]
     Active Substance: ACETAMINOPHEN\HYDROCODONE BITARTRATE
     Indication: PAIN
     Dosage: 5?325MG TABLET, 1?2 TABS EVERY 4?6 HOUS
     Route: 048
  21. BENADRYL [Concomitant]
     Active Substance: DIPHENHYDRAMINE HYDROCHLORIDE
     Indication: VOMITING
  22. ONDANSETRON [Concomitant]
     Active Substance: ONDANSETRON
     Indication: PRODUCT USED FOR UNKNOWN INDICATION
     Dosage: 4 MG, UNK
     Route: 042
     Dates: start: 20111109
  23. OXYCODONE HCL TABLETS (91?490) [Suspect]
     Active Substance: OXYCODONE HYDROCHLORIDE
     Dosage: 5 MG, Q3H
     Route: 048
     Dates: start: 20111109
  24. MS CONTIN [Suspect]
     Active Substance: MORPHINE SULFATE
     Dosage: 30 MG, UNK
     Route: 048
  25. DOCUSATE SODIUM. [Concomitant]
     Active Substance: DOCUSATE SODIUM
     Indication: PRODUCT USED FOR UNKNOWN INDICATION
     Dosage: 100 MG, BID
     Route: 065
     Dates: start: 20111109
  26. ACETAMINOPHEN. [Concomitant]
     Active Substance: ACETAMINOPHEN
     Indication: BODY TEMPERATURE INCREASED
  27. NALOXONE [Concomitant]
     Active Substance: NALOXONE
     Dosage: 0.2 MG/ML, PRN
     Route: 042
     Dates: start: 20111109
  28. DULCOLAX (BISACODYL) [Concomitant]
     Active Substance: BISACODYL
     Indication: CONSTIPATION
     Dosage: 5 MG, DAILY
     Route: 048
  29. DILAUDID [Suspect]
     Active Substance: HYDROMORPHONE HYDROCHLORIDE
     Indication: PAIN
     Dosage: 2 MG, Q3? 4H
     Route: 058
  30. TEMAZEPAM. [Concomitant]
     Active Substance: TEMAZEPAM
     Indication: INSOMNIA
     Dosage: 15 MG, NOCTE PRN
     Route: 065
     Dates: start: 20111109
  31. LORAZEPAM. [Concomitant]
     Active Substance: LORAZEPAM
     Indication: PRODUCT USED FOR UNKNOWN INDICATION
     Dosage: 0.5 MG TABLET, EVERY 6 HOURS
     Route: 065
     Dates: start: 20111109
  32. REVATIO [Concomitant]
     Active Substance: SILDENAFIL CITRATE
     Indication: PRODUCT USED FOR UNKNOWN INDICATION
     Dosage: 20 MG, TAKE 3 TABLETS BY MOUTH 1 HOUR PRIOR TO SEXUAL ACTIVITY
     Route: 065
  33. DICLOFENAC SODIUM. [Concomitant]
     Active Substance: DICLOFENAC SODIUM
     Indication: PAIN
     Dosage: 1 %, APPLY 4 GRAMS TO AFFECTED AREA
     Route: 061
  34. BENADRYL [Concomitant]
     Active Substance: DIPHENHYDRAMINE HYDROCHLORIDE
     Indication: RASH
     Dosage: 25 MG, UNK
     Route: 065

REACTIONS (3)
  - Unevaluable event [Unknown]
  - Intervertebral disc degeneration [Unknown]
  - Emotional distress [Unknown]
